FAERS Safety Report 5853945-X (Version None)
Quarter: 2008Q3

REPORT INFORMATION
  Report Type: 
  Country: None (occurrence: None)
  Receive Date: 20080822
  Receipt Date: 20080811
  Transmission Date: 20090109
  Serious: Yes (Life-Threatening, Hospitalization)
  Sender: FDA-Public Use
  Company Number: B0532695A

PATIENT
  Age: 81 Year
  Sex: Female

DRUGS (13)
  1. ZOPHREN [Suspect]
     Indication: DRUG USE FOR UNKNOWN INDICATION
     Dosage: 4MG THREE TIMES PER DAY
     Route: 042
     Dates: start: 20080302
  2. VFEND [Suspect]
     Indication: DRUG USE FOR UNKNOWN INDICATION
     Route: 042
     Dates: start: 20080225, end: 20080228
  3. VFEND [Suspect]
     Route: 048
     Dates: start: 20080228
  4. ERYTHROMYCIN [Suspect]
     Indication: DRUG USE FOR UNKNOWN INDICATION
     Dosage: 1G PER DAY
     Route: 042
     Dates: start: 20080229, end: 20080304
  5. BISOPROLOL FUMARATE [Suspect]
     Indication: DRUG USE FOR UNKNOWN INDICATION
     Dosage: 2.5MG PER DAY
     Route: 048
     Dates: start: 20080223
  6. AUGMENTIN '125' [Concomitant]
     Indication: DRUG USE FOR UNKNOWN INDICATION
     Dosage: 1G FOUR TIMES PER DAY
     Route: 042
     Dates: start: 20080305
  7. ATROVENT [Concomitant]
     Indication: DRUG USE FOR UNKNOWN INDICATION
     Dosage: .5MG FOUR TIMES PER DAY
     Route: 055
     Dates: start: 20080218
  8. BRICANYL [Concomitant]
     Indication: DRUG USE FOR UNKNOWN INDICATION
     Dosage: 5MG FOUR TIMES PER DAY
     Route: 055
     Dates: start: 20080218
  9. ASPEGIC 325 [Concomitant]
     Indication: DRUG USE FOR UNKNOWN INDICATION
     Dosage: 250MG PER DAY
     Route: 048
     Dates: start: 20080303
  10. MORPHINE [Concomitant]
     Indication: DRUG USE FOR UNKNOWN INDICATION
     Route: 065
     Dates: start: 20080226
  11. CALCIPARINE [Concomitant]
     Indication: DRUG USE FOR UNKNOWN INDICATION
     Dosage: .6ML PER DAY
     Route: 065
     Dates: start: 20080228
  12. TPN [Concomitant]
     Route: 065
  13. VITAMIN THERAPY [Concomitant]
     Route: 065

REACTIONS (4)
  - BRADYCARDIA [None]
  - CARDIAC ARREST [None]
  - DRUG INTERACTION [None]
  - TROPONIN INCREASED [None]
